FAERS Safety Report 10739625 (Version 1)
Quarter: 2015Q1

REPORT INFORMATION
  Report Type: Spontaneous
  Country: US (occurrence: US)
  Receive Date: 20150126
  Receipt Date: 20150126
  Transmission Date: 20150721
  Serious: Yes (Life-Threatening, Hospitalization)
  Sender: FDA-Public Use
  Company Number: US-JNJFOC-20150111580

PATIENT
  Age: 30 Year
  Sex: Female
  Weight: 55.43 kg

DRUGS (2)
  1. EXTRA STRENGTH TYLENOL PM [Suspect]
     Active Substance: ACETAMINOPHEN\DIPHENHYDRAMINE HYDROCHLORIDE
     Indication: SUICIDAL BEHAVIOUR
     Route: 065
     Dates: start: 20070713, end: 20070713
  2. ALCOHOL. [Suspect]
     Active Substance: ALCOHOL
     Indication: SUICIDAL BEHAVIOUR
     Route: 048
     Dates: start: 20070713, end: 20070713

REACTIONS (4)
  - Respiratory depression [Recovered/Resolved]
  - Intentional overdose [Recovered/Resolved]
  - Vomiting [Recovered/Resolved]
  - Suicidal behaviour [None]

NARRATIVE: CASE EVENT DATE: 20070713
